FAERS Safety Report 9963356 (Version 1)
Quarter: 2014Q1

REPORT INFORMATION
  Report Type: Report from Study
  Country: US (occurrence: US)
  Receive Date: 20140305
  Receipt Date: 20140305
  Transmission Date: 20141002
  Serious: No
  Sender: FDA-Public Use
  Company Number: US-ABBVIE-13P-163-1119563-00

PATIENT
  Age: 73 Year
  Sex: Female

DRUGS (2)
  1. HUMIRA [Suspect]
     Indication: COLITIS ULCERATIVE
     Dosage: LOADING DOSE
     Dates: start: 20130602, end: 20130602
  2. HUMIRA [Suspect]
     Dosage: LOADING DOSE

REACTIONS (2)
  - Poor quality sleep [Recovered/Resolved]
  - Headache [Recovered/Resolved]
